FAERS Safety Report 23239229 (Version 2)
Quarter: 2023Q4

REPORT INFORMATION
  Report Type: Spontaneous
  Country: US (occurrence: US)
  Receive Date: 20231129
  Receipt Date: 20231210
  Transmission Date: 20240109
  Serious: No
  Sender: FDA-Public Use
  Company Number: US-JNJFOC-20231155568

PATIENT
  Sex: Male

DRUGS (1)
  1. TREMFYA [Suspect]
     Active Substance: GUSELKUMAB
     Indication: Psoriasis
     Route: 065

REACTIONS (5)
  - Product leakage [Unknown]
  - Underdose [Unknown]
  - Inappropriate schedule of product administration [Unknown]
  - Product complaint [Unknown]
  - Off label use [Unknown]

NARRATIVE: CASE EVENT DATE: 20231114
